FAERS Safety Report 9206003 (Version 2)
Quarter: 2013Q2

REPORT INFORMATION
  Report Type: Report from Study
  Country: BR (occurrence: BR)
  Receive Date: 20130403
  Receipt Date: 20130416
  Transmission Date: 20140414
  Serious: Yes (Hospitalization, Disabling, Other)
  Sender: FDA-Public Use
  Company Number: BR-BAYER-2013-036706

PATIENT
  Age: 67 Year
  Sex: Female

DRUGS (4)
  1. NEXAVAR [Suspect]
     Indication: METASTASES TO LUNG
     Dosage: 200 MG, BID
     Route: 048
     Dates: start: 201302, end: 20130322
  2. NEXAVAR [Suspect]
     Indication: THYROID CANCER METASTATIC
     Dosage: 400 MG, BID
     Route: 048
     Dates: start: 20130322
  3. SYNTHROID [Concomitant]
     Indication: THYROID HORMONE REPLACEMENT THERAPY
     Dosage: 1 DF, QD
     Route: 048
     Dates: start: 1996
  4. ANTIBIOTICS [Concomitant]
     Indication: PNEUMONIA
     Dosage: UNK
     Route: 042
     Dates: start: 201302

REACTIONS (13)
  - Diabetes mellitus [Recovering/Resolving]
  - Decreased appetite [Recovered/Resolved]
  - Skin exfoliation [Not Recovered/Not Resolved]
  - Pain in extremity [Not Recovered/Not Resolved]
  - Dyspnoea [Recovered/Resolved]
  - Blood pressure increased [Recovered/Resolved]
  - Hallucination [Recovered/Resolved]
  - Off label use [None]
  - Oral candidiasis [Recovered/Resolved]
  - Dehydration [Recovered/Resolved]
  - Arrhythmia [Recovered/Resolved]
  - Skin exfoliation [Recovering/Resolving]
  - Constipation [Recovered/Resolved]
